FAERS Safety Report 10213544 (Version 1)
Quarter: 2014Q2

REPORT INFORMATION
  Report Type: Spontaneous
  Country: GB (occurrence: GB)
  Receive Date: 20140603
  Receipt Date: 20140603
  Transmission Date: 20141212
  Serious: Yes (Hospitalization)
  Sender: FDA-Public Use
  Company Number: GB-ELI_LILLY_AND_COMPANY-GB201405007256

PATIENT
  Sex: Female

DRUGS (1)
  1. HUMALOG 50% LISPRO, 50% NPL [Suspect]
     Indication: DIABETES MELLITUS
     Dosage: 76 U, QD
     Route: 065

REACTIONS (2)
  - Gastrointestinal disorder [Not Recovered/Not Resolved]
  - Hypoglycaemia [Unknown]
